FAERS Safety Report 19658060 (Version 1)
Quarter: 2021Q3

REPORT INFORMATION
  Report Type: Report from Study
  Country: BR (occurrence: BR)
  Receive Date: 20210804
  Receipt Date: 20210804
  Transmission Date: 20211014
  Serious: Yes (Other)
  Sender: FDA-Public Use
  Company Number: NVSC2021BR171851

PATIENT
  Age: 32 Year
  Sex: Female

DRUGS (2)
  1. DABRAFENIB [Suspect]
     Active Substance: DABRAFENIB
     Indication: PRODUCT USED FOR UNKNOWN INDICATION
     Dosage: UNK UNK, BID
     Route: 048
     Dates: start: 20200129
  2. TRAMETINIB [Suspect]
     Active Substance: TRAMETINIB
     Indication: PRODUCT USED FOR UNKNOWN INDICATION
     Dosage: UNK, QD
     Route: 048
     Dates: start: 20200129

REACTIONS (14)
  - Skin lesion [Unknown]
  - Dermatitis [Recovered/Resolved]
  - Inflammation [Unknown]
  - Pulmonary mass [Recovered/Resolved]
  - Skin hypertrophy [Recovered/Resolved]
  - Bone lesion [Unknown]
  - Hepatic lesion [Unknown]
  - Hepatic mass [Recovered/Resolved]
  - Skin mass [Recovered/Resolved]
  - Gastritis [Unknown]
  - Neoplasm [Unknown]
  - Liver disorder [Unknown]
  - Lymphadenopathy [Unknown]
  - Pyrexia [Recovered/Resolved]

NARRATIVE: CASE EVENT DATE: 2020
